FAERS Safety Report 21699611 (Version 1)
Quarter: 2022Q4

REPORT INFORMATION
  Report Type: Spontaneous
  Country: US (occurrence: US)
  Receive Date: 20221208
  Receipt Date: 20221208
  Transmission Date: 20230112
  Serious: No
  Sender: FDA-Public Use
  Company Number: US-PFIZER INC-2021167073

PATIENT
  Age: 54 Year
  Sex: Female

DRUGS (4)
  1. XELJANZ [Suspect]
     Active Substance: TOFACITINIB CITRATE
     Dosage: 5 MG [5MG QUANTITY 120 DAY SUPPLY 30]
  2. XELJANZ [Suspect]
     Active Substance: TOFACITINIB CITRATE
     Dosage: 5 MG
     Dates: start: 20200724
  3. XELJANZ [Suspect]
     Active Substance: TOFACITINIB CITRATE
     Dosage: 20 MG, DAILY, (QUANTITY 120 DAY SUPPLY 30)
  4. XELJANZ [Suspect]
     Active Substance: TOFACITINIB CITRATE
     Dosage: 20 MG, DAILY (5MG QUANTITY 120 DAY SUPPLY 30)

REACTIONS (4)
  - Memory impairment [Unknown]
  - Off label use [Unknown]
  - Prescribed overdose [Unknown]
  - Product dose omission issue [Unknown]
